FAERS Safety Report 18244286 (Version 1)
Quarter: 2020Q3

REPORT INFORMATION
  Report Type: Spontaneous
  Country: US (occurrence: US)
  Receive Date: 20200908
  Receipt Date: 20200908
  Transmission Date: 20201103
  Serious: Yes (Hospitalization, Other)
  Sender: FDA-Public Use
  Company Number: NVSC2020US239622

PATIENT
  Age: 80 Year
  Sex: Female
  Weight: 73.9 kg

DRUGS (5)
  1. PREDNISONE. [Interacting]
     Active Substance: PREDNISONE
     Indication: PRODUCT USED FOR UNKNOWN INDICATION
     Route: 065
  2. TREPROSTINIL SODIUM [Suspect]
     Active Substance: TREPROSTINIL SODIUM
     Indication: PULMONARY ARTERIAL HYPERTENSION
     Dosage: UNK
     Route: 065
     Dates: start: 20121015
  3. TREPROSTINIL SODIUM [Suspect]
     Active Substance: TREPROSTINIL SODIUM
     Dosage: UNK
     Route: 055
  4. TREPROSTINIL SODIUM [Suspect]
     Active Substance: TREPROSTINIL SODIUM
     Dosage: 1 DF (60?120 UG), QID
     Route: 055
  5. DOXYCYCLINE. [Interacting]
     Active Substance: DOXYCYCLINE
     Indication: PRODUCT USED FOR UNKNOWN INDICATION
     Route: 065

REACTIONS (9)
  - Pulmonary congestion [Unknown]
  - Sinus congestion [Unknown]
  - Off label use [Unknown]
  - Brain neoplasm [Unknown]
  - Blood pressure increased [Unknown]
  - Confusional state [Unknown]
  - Palpitations [Unknown]
  - Drug interaction [Unknown]
  - Heart rate increased [Unknown]

NARRATIVE: CASE EVENT DATE: 202008
